FAERS Safety Report 17766104 (Version 2)
Quarter: 2021Q3

REPORT INFORMATION
  Report Type: Report from Study
  Country: CO (occurrence: CO)
  Receive Date: 20200511
  Receipt Date: 20210921
  Transmission Date: 20211014
  Serious: Yes (Hospitalization, Other)
  Sender: FDA-Public Use
  Company Number: CO-JNJFOC-20190728871

PATIENT
  Age: 56 Year
  Sex: Female
  Weight: 49 kg

DRUGS (5)
  1. INVEGA SUSTENNA [Suspect]
     Active Substance: PALIPERIDONE PALMITATE
     Dosage: DAY?08
     Route: 030
     Dates: start: 20210819
  2. QUETIAPINE. [Concomitant]
     Active Substance: QUETIAPINE
  3. CLOZAPINE. [Concomitant]
     Active Substance: CLOZAPINE
  4. INVEGA SUSTENNA [Suspect]
     Active Substance: PALIPERIDONE PALMITATE
     Indication: SCHIZOPHRENIA
     Route: 030
     Dates: start: 20151015, end: 20190420
  5. INVEGA SUSTENNA [Suspect]
     Active Substance: PALIPERIDONE PALMITATE
     Dosage: DAY?0
     Route: 030
     Dates: start: 20210810

REACTIONS (5)
  - Pneumonia aspiration [Not Recovered/Not Resolved]
  - Coma [Not Recovered/Not Resolved]
  - Cerebrovascular accident [Not Recovered/Not Resolved]
  - Gastrectomy [Unknown]
  - Dyskinesia [Not Recovered/Not Resolved]

NARRATIVE: CASE EVENT DATE: 201904
